FAERS Safety Report 16358506 (Version 1)
Quarter: 2019Q2

REPORT INFORMATION
  Report Type: Spontaneous
  Country: CA (occurrence: CA)
  Receive Date: 20190527
  Receipt Date: 20190527
  Transmission Date: 20190711
  Serious: Yes (Other)
  Sender: FDA-Public Use
  Company Number: CA-PFIZER INC-2019220888

PATIENT
  Age: 53 Year
  Sex: Male

DRUGS (6)
  1. INVOKANA [Suspect]
     Active Substance: CANAGLIFLOZIN
     Indication: TYPE 2 DIABETES MELLITUS
     Dosage: 100 MG, EVERY 1 DAY
     Route: 048
  2. SAXAGLIPTIN HYDROCHLORIDE. [Concomitant]
     Active Substance: SAXAGLIPTIN HYDROCHLORIDE
     Indication: TYPE 2 DIABETES MELLITUS
     Dosage: 5 MG, 1X/DAY
     Route: 048
  3. HYDROCHLOROTHIAZIDE/QUINAPRIL HYDROCHLORIDE [Suspect]
     Active Substance: HYDROCHLOROTHIAZIDE\QUINAPRIL HYDROCHLORIDE
     Dosage: UNK, 1X/DAY
     Route: 048
  4. PAROXETINE HYDROCHLORIDE. [Concomitant]
     Active Substance: PAROXETINE HYDROCHLORIDE
     Dosage: 20 MG, 1X/DAY
     Route: 048
  5. INVOKANA [Suspect]
     Active Substance: CANAGLIFLOZIN
     Dosage: 300 MG, EVERY 1 DAY
     Route: 048
  6. METFORMIN [Concomitant]
     Active Substance: METFORMIN HYDROCHLORIDE
     Indication: TYPE 2 DIABETES MELLITUS
     Dosage: 500 MG, 2X/DAY

REACTIONS (6)
  - Glomerular filtration rate decreased [Unknown]
  - Weight decreased [Unknown]
  - Urinary tract infection [Unknown]
  - Decreased appetite [Unknown]
  - Urine output increased [Unknown]
  - Polydipsia [Unknown]
